FAERS Safety Report 24704853 (Version 1)
Quarter: 2024Q4

REPORT INFORMATION
  Report Type: Spontaneous
  Country: GB (occurrence: GB)
  Receive Date: 20241206
  Receipt Date: 20241206
  Transmission Date: 20250115
  Serious: Yes (Other)
  Sender: AUROBINDO
  Company Number: GB-MHRA-TPP7327444C10017888YC1732191945759

PATIENT
  Age: 24 Year
  Sex: Female
  Weight: 45 kg

DRUGS (3)
  1. CITALOPRAM HYDROBROMIDE [Suspect]
     Active Substance: CITALOPRAM HYDROBROMIDE
     Indication: Product used for unknown indication
     Dosage: 20 MILLIGRAM, ONCE A DAY (20MG TABLETSTAKE ONE TABLET DAILY FOR MOOD)
     Route: 065
     Dates: start: 20241113
  2. KELHALE [Concomitant]
     Indication: Product used for unknown indication
     Dosage: 1 DOSAGE FORM, TWO TIMES A DAY (INHALE ONE PUFF SLOW AND STEADY, TWICE DAILY (L..)
     Dates: start: 20221111
  3. ALBUTEROL [Concomitant]
     Active Substance: ALBUTEROL
     Indication: Product used for unknown indication
     Dosage: 2 DOSAGE FORM (ASTHMA: INHALE TWO PUFFS SLOW AND STEADY, WHEN ...)
     Dates: start: 20221111

REACTIONS (1)
  - Lip swelling [Recovered/Resolved]

NARRATIVE: CASE EVENT DATE: 20241116
